FAERS Safety Report 11897871 (Version 2)
Quarter: 2016Q1

REPORT INFORMATION
  Report Type: Spontaneous
  Country: US (occurrence: US)
  Receive Date: 20160108
  Receipt Date: 20160118
  Transmission Date: 20160526
  Serious: Yes (Hospitalization, Other)
  Sender: FDA-Public Use
  Company Number: US-CIPLA LTD.-2016US00006

PATIENT

DRUGS (4)
  1. METHYLPREDNISOLONE. [Suspect]
     Active Substance: METHYLPREDNISOLONE
     Route: 042
  2. IPRATROPIUM BROMIDE/ALBUTEROL SULFATE [Suspect]
     Active Substance: ALBUTEROL SULFATE\IPRATROPIUM BROMIDE
     Route: 065
  3. MAGNESIUM SULFATE. [Suspect]
     Active Substance: MAGNESIUM SULFATE
     Route: 042
  4. TERBUTALINE [Suspect]
     Active Substance: TERBUTALINE
     Route: 058

REACTIONS (12)
  - Exposure during pregnancy [Unknown]
  - Hyperkalaemia [Unknown]
  - Cough [Unknown]
  - Respiratory failure [Unknown]
  - Acidosis [None]
  - Condition aggravated [Unknown]
  - Electrocardiogram abnormal [Unknown]
  - Mucosal haemorrhage [Unknown]
  - Respiratory distress [Unknown]
  - Cerebral haemorrhage [Unknown]
  - Dyspnoea [None]
  - Drug ineffective [Unknown]
